FAERS Safety Report 20835003 (Version 1)
Quarter: 2022Q2

REPORT INFORMATION
  Report Type: Spontaneous
  Country: US (occurrence: None)
  Receive Date: 20220516
  Receipt Date: 20220516
  Transmission Date: 20220721
  Serious: No
  Sender: FDA-Public Use
  Company Number: None

PATIENT
  Age: 40 Year
  Sex: Female

DRUGS (14)
  1. NALTREXONE HYDROCHLORIDE [Suspect]
     Active Substance: NALTREXONE HYDROCHLORIDE
     Dosage: FREQUENCY : EVERY OTHER DAY;?
     Route: 048
     Dates: start: 20220511, end: 20220512
  2. buspirone 15mg tab [Concomitant]
  3. duloxetine 60mg dr cap [Concomitant]
  4. ASA 81mg ec tab [Concomitant]
  5. METOPROLOL TARTRATE [Concomitant]
     Active Substance: METOPROLOL TARTRATE
  6. atorvastatin 40mg tab [Concomitant]
  7. gabapentin 600mg tab [Concomitant]
  8. pot chloride 10meq ER tab [Concomitant]
  9. furosemide 20mg tab [Concomitant]
  10. LISINOPRIL [Concomitant]
     Active Substance: LISINOPRIL
  11. pantoprazole 40mg tab [Concomitant]
  12. Vitamin B-12 1000mcg tab [Concomitant]
  13. Vitamin D3 5,000 tab [Concomitant]
  14. isosorb mono 30mg ER tab [Concomitant]

REACTIONS (2)
  - Feeding disorder [None]
  - Fluid intake reduced [None]

NARRATIVE: CASE EVENT DATE: 20220511
